FAERS Safety Report 14794813 (Version 4)
Quarter: 2018Q2

REPORT INFORMATION
  Report Type: Report from Study
  Country: US (occurrence: US)
  Receive Date: 20180423
  Receipt Date: 20180622
  Transmission Date: 20180711
  Serious: Yes (Hospitalization, Other)
  Sender: FDA-Public Use
  Company Number: US-BAYER-2018-074576

PATIENT
  Age: 62 Year
  Sex: Male

DRUGS (3)
  1. NEXAVAR [Suspect]
     Active Substance: SORAFENIB
     Indication: HEPATOCELLULAR CARCINOMA
     Dosage: 200 MG MORNING/400 MG, EVENING
     Route: 048
     Dates: start: 20180501, end: 20180605
  2. NEXAVAR [Suspect]
     Active Substance: SORAFENIB
     Indication: HEPATOCELLULAR CARCINOMA
     Dosage: 400 MG, BID
     Route: 048
     Dates: start: 20180406, end: 20180417
  3. NEXAVAR [Suspect]
     Active Substance: SORAFENIB
     Indication: HEPATOCELLULAR CARCINOMA
     Dosage: 200 MG MORNING/400 MG, EVENING
     Route: 048
     Dates: start: 20180418, end: 201804

REACTIONS (15)
  - Pyrexia [Recovered/Resolved]
  - Fatigue [None]
  - Constipation [Recovering/Resolving]
  - Peripheral swelling [Recovering/Resolving]
  - Tumour marker increased [None]
  - Diarrhoea [Recovering/Resolving]
  - Blood pressure increased [None]
  - Biliary tract infection [None]
  - Pyrexia [Recovered/Resolved]
  - Confusional state [Recovering/Resolving]
  - Drug ineffective [None]
  - Hepatocellular carcinoma [None]
  - Diarrhoea [Recovering/Resolving]
  - Faecaloma [None]
  - Fatigue [Recovered/Resolved]

NARRATIVE: CASE EVENT DATE: 2018
